FAERS Safety Report 6329281-4 (Version None)
Quarter: 2009Q3

REPORT INFORMATION
  Report Type: 
  Country: None (occurrence: None)
  Receive Date: 20090826
  Receipt Date: 20090814
  Transmission Date: 20100115
  Serious: Yes (Hospitalization)
  Sender: FDA-Public Use
  Company Number: IT-PFIZER INC-2009243913

PATIENT
  Age: 39 Year

DRUGS (11)
  1. SUNITINIB MALATE [Suspect]
     Indication: BREAST CANCER
     Dosage: 25 MG, 1X/DAY
     Route: 048
     Dates: start: 20090403, end: 20090721
  2. PACLITAXEL [Suspect]
     Indication: BREAST CANCER
     Dosage: 157 MG, WEEKLY 3 OF 4 WEEKS
     Route: 042
     Dates: start: 20090403, end: 20090708
  3. HYDROCORTISON [Concomitant]
     Indication: PROPHYLAXIS
     Dosage: 200 MG, WEEKLY
     Route: 042
     Dates: start: 20090403, end: 20090708
  4. PREDNISONE [Concomitant]
     Indication: PROPHYLAXIS
     Dosage: 25 MG, WEEKLY
     Route: 048
     Dates: start: 20090403, end: 20090708
  5. TROPISETRON [Concomitant]
     Indication: PROPHYLAXIS
     Dosage: UNK
     Dates: start: 20090403, end: 20090708
  6. DEXAMETHASONE [Concomitant]
     Indication: PROPHYLAXIS
     Dosage: 4 MG, WEEKLY
     Route: 042
     Dates: start: 20090403, end: 20090708
  7. RANITIDINE [Concomitant]
     Indication: CHEMOTHERAPY
     Dosage: UNK
     Dates: start: 20090403, end: 20090708
  8. MAALOX [Concomitant]
     Indication: MUCOSAL INFLAMMATION
     Dosage: UNK
     Dates: start: 20090720, end: 20090720
  9. LIDOCAINE [Concomitant]
     Indication: MUCOSAL INFLAMMATION
     Dosage: UNK
     Dates: start: 20090720, end: 20090720
  10. GRANULOKINE [Concomitant]
     Indication: LEUKOPENIA
     Dosage: UNK
     Dates: start: 20090720, end: 20090720
  11. FLUCONAZOLE [Concomitant]
     Indication: MUCOSAL INFLAMMATION
     Dosage: UNK
     Dates: start: 20090623, end: 20090720

REACTIONS (1)
  - HAEMOPTYSIS [None]
